FAERS Safety Report 8924497 (Version 1)
Quarter: 2012Q4

REPORT INFORMATION
  Report Type: Report from Study
  Country: GB (occurrence: GB)
  Receive Date: 20121126
  Receipt Date: 20121126
  Transmission Date: 20130627
  Serious: Yes (Hospitalization)
  Sender: FDA-Public Use
  Company Number: GB-ROCHE-1159944

PATIENT
  Age: 86 Year
  Sex: Male
  Weight: 59 kg

DRUGS (8)
  1. RANIBIZUMAB [Suspect]
     Indication: AGE-RELATED MACULAR DEGENERATION
     Dosage: 0.5 mg/0.05 ml, latest received date: 22/Jun/2012
     Route: 050
     Dates: start: 20120221
  2. ASPIRIN [Concomitant]
  3. TICAGRELOR [Concomitant]
  4. SIMVASTATIN [Concomitant]
  5. BISOPROLOL [Concomitant]
  6. RAMIPRIL [Concomitant]
  7. ATORVASTATIN [Concomitant]
  8. GTN SPRAY [Concomitant]

REACTIONS (1)
  - Myocardial infarction [Recovered/Resolved]
